FAERS Safety Report 8530154-7 (Version None)
Quarter: 2012Q3

REPORT INFORMATION
  Report Type: 
  Country: None (occurrence: None)
  Receive Date: 20120723
  Receipt Date: 20120719
  Transmission Date: 20120928
  Serious: Yes (Hospitalization)
  Sender: FDA-Public Use
  Company Number: PHHO2011FR13547

PATIENT
  Sex: Female
  Weight: 60 kg

DRUGS (10)
  1. ASCORBIC ACID [Concomitant]
     Dosage: UNK
     Route: 048
  2. CELLCEPT [Suspect]
     Indication: RENAL TRANSPLANT
     Dosage: 1 G, QD
     Route: 048
     Dates: start: 20110710
  3. VALGANCICLOVIR [Concomitant]
     Dosage: 450 MG, UNK
     Route: 048
     Dates: start: 20110730
  4. LASIX [Concomitant]
     Dosage: UNK
     Route: 048
  5. NEORAL [Suspect]
     Indication: RENAL TRANSPLANT
     Dosage: 375 MG, QD
     Route: 048
     Dates: start: 20110715
  6. PREDNISONE TAB [Concomitant]
     Indication: RENAL TRANSPLANT
     Dosage: 5 MG, QD
     Route: 048
     Dates: start: 20110710
  7. ESOMEPRAZOLE [Concomitant]
     Dosage: UNK
     Route: 048
     Dates: start: 20110802
  8. NEORAL [Suspect]
     Dosage: 75 MG, BID
  9. PROGRAF [Concomitant]
     Indication: RENAL TRANSPLANT
  10. IRON [Concomitant]
     Dosage: UNK
     Route: 048

REACTIONS (4)
  - LYMPHOCELE [None]
  - OVERDOSE [None]
  - RENAL FAILURE ACUTE [None]
  - ESCHERICHIA SEPSIS [None]
